FAERS Safety Report 6306989-8 (Version None)
Quarter: 2009Q3

REPORT INFORMATION
  Report Type: 
  Country: None (occurrence: None)
  Receive Date: 20090812
  Receipt Date: 20090804
  Transmission Date: 20100115
  Serious: Yes (Disabling)
  Sender: FDA-Public Use
  Company Number: US-SANOFI-SYNTHELABO-A03200903428

PATIENT
  Sex: Female

DRUGS (4)
  1. PLAVIX [Suspect]
     Indication: ARTERIOSCLEROSIS
     Route: 048
     Dates: start: 20070101
  2. PLAVIX [Suspect]
     Route: 048
  3. PLAVIX [Suspect]
     Route: 048
  4. PLAVIX [Suspect]
     Route: 048

REACTIONS (6)
  - ASTHENIA [None]
  - FATIGUE [None]
  - HYPOKINESIA [None]
  - MALAISE [None]
  - MUSCULAR WEAKNESS [None]
  - PAIN IN EXTREMITY [None]
